FAERS Safety Report 12272323 (Version 1)
Quarter: 2016Q2

REPORT INFORMATION
  Report Type: Report from Study
  Country: US (occurrence: US)
  Receive Date: 20160415
  Receipt Date: 20160415
  Transmission Date: 20160815
  Serious: Yes (Hospitalization, Other)
  Sender: FDA-Public Use
  Company Number: US-AMGEN-USASL2016046147

PATIENT
  Age: 60 Year
  Sex: Male

DRUGS (1)
  1. ENBREL [Suspect]
     Active Substance: ETANERCEPT
     Indication: PRODUCT USED FOR UNKNOWN INDICATION
     Dosage: UNK
     Route: 065

REACTIONS (9)
  - Pertussis [Unknown]
  - Oxygen saturation decreased [Unknown]
  - Asthenia [Unknown]
  - Unevaluable event [Unknown]
  - Bronchitis [Unknown]
  - Bone disorder [Unknown]
  - Hospitalisation [Unknown]
  - Decreased immune responsiveness [Unknown]
  - Influenza [Unknown]

NARRATIVE: CASE EVENT DATE: 2015
